FAERS Safety Report 22961217 (Version 2)
Quarter: 2023Q4

REPORT INFORMATION
  Report Type: Spontaneous
  Country: IT (occurrence: IT)
  Receive Date: 20230920
  Receipt Date: 20231013
  Transmission Date: 20240109
  Serious: Yes (Death)
  Sender: FDA-Public Use
  Company Number: None

PATIENT
  Age: 76 Year
  Sex: Female

DRUGS (1)
  1. METFORMIN [Suspect]
     Active Substance: METFORMIN HYDROCHLORIDE
     Indication: Diabetes mellitus
     Dosage: 1000 MILLIGRAM DAILY; 500 MG 1 TABLET AT 8 AM, 500 MG 1 TABLET AT 8 PM  , METFORMINA
     Route: 065

REACTIONS (1)
  - Diabetic ketoacidotic hyperglycaemic coma [Fatal]

NARRATIVE: CASE EVENT DATE: 20230601
